FAERS Safety Report 8098003 (Version 2)
Quarter: 2013Q4

REPORT INFORMATION
  Report Type: Spontaneous
  Country: US (occurrence: US)
  Receive Date: 20110819
  Receipt Date: 20131016
  Transmission Date: 20140711
  Serious: Yes (Other)
  Sender: FDA-Public Use
  Company Number: US-ROCHE-796780

PATIENT
  Age: 30 Year
  Sex: Female
  Weight: 104.42 kg

DRUGS (2)
  1. ACCUTANE [Suspect]
     Indication: ACNE
     Route: 065
     Dates: start: 200401, end: 200412
  2. ACCUTANE [Suspect]
     Route: 065

REACTIONS (4)
  - Crohn^s disease [Unknown]
  - Irritable bowel syndrome [Unknown]
  - Depression [Unknown]
  - Large intestine polyp [Unknown]
